FAERS Safety Report 17846212 (Version 1)
Quarter: 2020Q2

REPORT INFORMATION
  Report Type: Spontaneous
  Country: NZ (occurrence: NZ)
  Receive Date: 20200601
  Receipt Date: 20200601
  Transmission Date: 20200714
  Serious: Yes (Other)
  Sender: FDA-Public Use
  Company Number: NZ-ELI_LILLY_AND_COMPANY-NZ202005007292

PATIENT
  Sex: Female

DRUGS (3)
  1. OLANZAPINE PAMOATE 300MG [Suspect]
     Active Substance: OLANZAPINE PAMOATE
     Indication: PRODUCT USED FOR UNKNOWN INDICATION
     Dosage: 300 MG, OTHER
     Route: 030
     Dates: start: 20171219, end: 20180406
  2. OLANZAPINE PAMOATE 300MG [Suspect]
     Active Substance: OLANZAPINE PAMOATE
     Indication: PRODUCT USED FOR UNKNOWN INDICATION
     Dosage: 300 MG, OTHER
     Route: 030
     Dates: start: 20171219, end: 20180406
  3. OLANZAPINE PAMOATE 300MG [Suspect]
     Active Substance: OLANZAPINE PAMOATE
     Indication: PRODUCT USED FOR UNKNOWN INDICATION
     Dosage: 300 MG, OTHER
     Route: 030
     Dates: start: 20171219, end: 20180406

REACTIONS (1)
  - Injection site ulcer [Not Recovered/Not Resolved]
